FAERS Safety Report 5710919-7 (Version None)
Quarter: 2008Q2

REPORT INFORMATION
  Report Type: 
  Country: None (occurrence: None)
  Receive Date: 20080421
  Receipt Date: 20080411
  Transmission Date: 20081010
  Serious: Yes (Hospitalization)
  Sender: FDA-Public Use
  Company Number: PHRM2008FR01263

PATIENT
  Age: 78 Year
  Sex: Female

DRUGS (8)
  1. LOVENOX [Suspect]
     Indication: PROPHYLAXIS
     Dosage: 4000 IU, QD
     Route: 058
     Dates: start: 20080117, end: 20080124
  2. ROCEPHIN [Suspect]
     Indication: ESCHERICHIA SEPSIS
     Dosage: 1 G, QD
     Route: 042
     Dates: start: 20080116, end: 20080124
  3. LEXOMIL [Suspect]
     Indication: ANXIETY
     Route: 048
     Dates: start: 20080116, end: 20080118
  4. ACETAMINOPHEN [Suspect]
     Indication: PAIN
     Dosage: 1 G, QD
     Route: 048
     Dates: start: 20080118, end: 20080120
  5. MOVICOL [Concomitant]
     Indication: CONSTIPATION
     Dosage: 1 DF, QD
     Route: 048
     Dates: start: 20080119
  6. LEVOTHYROXINE SODIUM [Concomitant]
     Indication: HYPOTHYROIDISM
     Dosage: 75 UG, QD
     Route: 048
  7. VASTAREL ^BIOPHARMA^ [Concomitant]
     Indication: ANGINA PECTORIS
     Dosage: 35 MG, BID
     Route: 048
  8. STALEVO 100 [Suspect]
     Indication: PARKINSON'S DISEASE
     Dosage: 1000/500/125 MG/DAY
     Route: 048

REACTIONS (7)
  - ASTHENIA [None]
  - COMPRESSION STOCKINGS APPLICATION [None]
  - ESCHERICHIA SEPSIS [None]
  - FAECALOMA [None]
  - GENERAL PHYSICAL HEALTH DETERIORATION [None]
  - ORTHOSTATIC HYPOTENSION [None]
  - SUBILEUS [None]
